FAERS Safety Report 11284551 (Version 1)
Quarter: 2015Q3

REPORT INFORMATION
  Report Type: Spontaneous
  Country: JP (occurrence: JP)
  Receive Date: 20150720
  Receipt Date: 20150720
  Transmission Date: 20151125
  Serious: Yes (Other)
  Sender: FDA-Public Use
  Company Number: JP-BRACCO-009244

PATIENT
  Age: 61 Year
  Sex: Male

DRUGS (3)
  1. CARBON DIOXIDE. [Concomitant]
     Active Substance: CARBON DIOXIDE
  2. ETHANOLAMINE OLEATE. [Suspect]
     Active Substance: ETHANOLAMINE OLEATE
     Indication: HEPATIC EMBOLISATION
     Dosage: 14-20 ML OF A MIX OF 10% ETHANOLAMINE OLEATE AND SAME VOLUME OF IOPAMIDOL 300 AND CO2 IN A 1:2 RATIO
  3. IOPAMIDOL [Suspect]
     Active Substance: IOPAMIDOL
     Indication: HEPATIC EMBOLISATION
     Dosage: 14-20 ML OF A MIX OF 10% ETHANOLAMINE OLEATE AND SAME VOLUME OF IOPAMIDOL AND CO2 IN A 1:2 RATIO

REACTIONS (3)
  - Arterial haemorrhage [Unknown]
  - Pyrexia [Recovered/Resolved]
  - Abdominal pain [Unknown]
